FAERS Safety Report 16716105 (Version 3)
Quarter: 2019Q4

REPORT INFORMATION
  Report Type: Spontaneous
  Country: JP (occurrence: JP)
  Receive Date: 20190819
  Receipt Date: 20191107
  Transmission Date: 20200122
  Serious: Yes (Death, Other)
  Sender: FDA-Public Use
  Company Number: JP-009507513-1908JPN000908J

PATIENT
  Age: 66 Year
  Sex: Male
  Weight: 47 kg

DRUGS (15)
  1. TAZOBACTAM [Concomitant]
     Active Substance: TAZOBACTAM
     Dosage: 4.5 MILLIGRAM, TID
     Route: 042
     Dates: start: 20190424, end: 20190424
  2. TAZOBACTAM [Concomitant]
     Active Substance: TAZOBACTAM
     Dosage: 4.5 MILLIGRAM, BID
     Route: 042
     Dates: start: 20190425, end: 20190425
  3. ASPIRIN. [Concomitant]
     Active Substance: ASPIRIN
     Indication: PERICARDITIS MALIGNANT
     Dosage: 400 MILLIGRAM, TID
     Route: 048
     Dates: start: 20190421, end: 20190430
  4. CARBOPLATIN. [Suspect]
     Active Substance: CARBOPLATIN
     Indication: NON-SMALL CELL LUNG CANCER
     Dosage: 400 MILLIGRAM,UNK
     Route: 041
     Dates: start: 20190422, end: 20190422
  5. VANCOMYCIN [Concomitant]
     Active Substance: VANCOMYCIN
     Dosage: 1 GRAM, BID
     Route: 042
     Dates: start: 20190427, end: 20190430
  6. KEYTRUDA [Suspect]
     Active Substance: PEMBROLIZUMAB
     Indication: NON-SMALL CELL LUNG CANCER
     Dosage: 200 MILLIGRAM,UNK
     Route: 041
     Dates: start: 20190422, end: 20190422
  7. PEMETREXED DISODIUM [Suspect]
     Active Substance: PEMETREXED DISODIUM
     Indication: NON-SMALL CELL LUNG CANCER
     Dosage: 750 MILLIGRAM,UNK
     Route: 041
     Dates: start: 20190422, end: 20190422
  8. OMEPRAL [Concomitant]
     Active Substance: OMEPRAZOLE
     Indication: PROPHYLAXIS
  9. ORGADRONE [Concomitant]
     Active Substance: DEXAMETHASONE SODIUM PHOSPHATE
     Indication: ANTIEMETIC SUPPORTIVE CARE
     Dosage: .8 UNK
     Route: 042
     Dates: start: 20190423, end: 20190424
  10. TAZOBACTAM [Concomitant]
     Active Substance: TAZOBACTAM
     Indication: BLOOD CULTURE POSITIVE
     Dosage: 4.5 MILLIGRAM, BID
     Route: 042
     Dates: start: 20190423, end: 20190423
  11. VANCOMYCIN [Concomitant]
     Active Substance: VANCOMYCIN
     Indication: ANTIBIOTIC PROPHYLAXIS
     Dosage: 1 GRAM, QD
     Route: 042
     Dates: start: 20190425, end: 20190426
  12. BISOPROLOL [Concomitant]
     Active Substance: BISOPROLOL
     Indication: ATRIAL FIBRILLATION
     Dosage: 2.5 MILLIGRAM, QD
     Route: 048
     Dates: start: 20190412, end: 20190429
  13. OMEPRAL [Concomitant]
     Active Substance: OMEPRAZOLE
     Indication: NOTHING BY MOUTH ORDER
     Dosage: 20 MILLIGRAM, QD
     Route: 042
     Dates: start: 20190419, end: 20190430
  14. ORGADRONE [Concomitant]
     Active Substance: DEXAMETHASONE SODIUM PHOSPHATE
     Indication: CHEMOTHERAPY
     Dosage: 15.2 MILLIGRAM, QD
     Route: 042
     Dates: start: 20190422, end: 20190422
  15. FENTOS [Concomitant]
     Active Substance: FENTANYL
     Indication: CANCER PAIN
     Dosage: 2 MILLIGRAM, QD
     Route: 050
     Dates: start: 20190416, end: 20190430

REACTIONS (2)
  - Haemoptysis [Fatal]
  - Malignant neoplasm progression [Fatal]

NARRATIVE: CASE EVENT DATE: 20190430
